FAERS Safety Report 5502871-4 (Version None)
Quarter: 2007Q4

REPORT INFORMATION
  Report Type: 
  Country: None (occurrence: None)
  Receive Date: 20071031
  Receipt Date: 20071026
  Transmission Date: 20080405
  Serious: Yes (Death)
  Sender: FDA-Public Use
  Company Number: JP-AVENTIS-200712319JP

PATIENT
  Age: 67 Year
  Sex: Male
  Weight: 68 kg

DRUGS (10)
  1. TAXOTERE [Suspect]
     Route: 041
     Dates: start: 20060911, end: 20060911
  2. TAXOTERE [Suspect]
     Route: 041
     Dates: start: 20060918, end: 20060918
  3. TAXOTERE [Suspect]
     Route: 041
     Dates: start: 20061002, end: 20061002
  4. TAXOTERE [Suspect]
     Route: 041
     Dates: start: 20061009, end: 20061009
  5. RADIOTHERAPY [Concomitant]
     Dosage: DOSE: 60 GY/TOTAL
     Dates: start: 20060913, end: 20061026
  6. FLUOROURACIL [Concomitant]
     Dosage: DOSE: 2180 MG/ 120 HOURS
     Route: 041
     Dates: start: 20060911
  7. FLUOROURACIL [Concomitant]
     Dosage: DOSE: 2180 MG/ 120 HOURS
     Route: 041
     Dates: start: 20060918
  8. FLUOROURACIL [Concomitant]
     Dosage: DOSE: 2180 MG/ 120 HOURS
     Route: 041
     Dates: start: 20060925
  9. FLUOROURACIL [Concomitant]
     Dosage: DOSE: 2180 MG/ 120 HOURS
     Route: 041
     Dates: start: 20061002
  10. FLUOROURACIL [Concomitant]
     Dosage: DOSE: 2180 MG/ 120 HOURS
     Route: 041
     Dates: start: 20061016

REACTIONS (1)
  - INTERSTITIAL LUNG DISEASE [None]
